FAERS Safety Report 9026709 (Version 1)
Quarter: 2013Q1

REPORT INFORMATION
  Report Type: Spontaneous
  Country: US (occurrence: None)
  Receive Date: 20130107
  Receipt Date: 20130107
  Transmission Date: 20140127
  Serious: Yes (Other)
  Sender: FDA-Public Use
  Company Number: GER/ITL/13/0027299

PATIENT
  Age: 75 Year
  Sex: Male

DRUGS (8)
  1. CLOPIDOGREL (CLOPIDOGREL) [Suspect]
     Indication: THROMBOSIS PROPHYLAXIS
     Route: 048
     Dates: start: 20060101, end: 20120928
  2. COUMADIN (WARFARIN SODIUM) [Suspect]
     Indication: ATRIAL FIBRILLATION
     Dosage: 1 IN 1 DAY AS REQUIRED, ORAL.
     Route: 048
     Dates: start: 20060101, end: 20120928
  3. CARDIOASPIRIN (ACETYLSALICYLIC ACID) [Suspect]
     Indication: THROMBOSIS PROPHYLAXIS
     Dosage: 1 IN I DAY
     Route: 048
     Dates: start: 20060101, end: 20120928
  4. BISOPROLOL (BISOPROLOL FUMARATE) [Concomitant]
  5. PANTOPRAZOLE (PANTOPRAZOLE) [Concomitant]
  6. ATORVASTATIN (ATORVASTATIN) [Concomitant]
  7. ALLOPURINOL [Concomitant]
  8. IRBESARTAN (IRBESARTAN) [Concomitant]

REACTIONS (4)
  - Haemoptysis [None]
  - Gingival bleeding [None]
  - Haematocrit decreased [None]
  - Haemoglobin decreased [None]
